FAERS Safety Report 4421211-5 (Version None)
Quarter: 2004Q3

REPORT INFORMATION
  Report Type: 
  Country: None (occurrence: None)
  Receive Date: 20040809
  Receipt Date: 20040715
  Transmission Date: 20050211
  Serious: Yes (Other)
  Sender: FDA-Public Use
  Company Number: PHBS2004CA09637

PATIENT
  Age: 39 Year
  Sex: Female
  Weight: 55 kg

DRUGS (1)
  1. LAMISIL [Suspect]
     Indication: TINEA INFECTION
     Dosage: 250 MG/DAY
     Route: 048
     Dates: start: 20040628, end: 20040708

REACTIONS (7)
  - BURNING SENSATION [None]
  - DERMATITIS EXFOLIATIVE [None]
  - ERYTHEMA [None]
  - MOBILITY DECREASED [None]
  - PHARYNGOLARYNGEAL PAIN [None]
  - RASH [None]
  - SKIN IRRITATION [None]
